FAERS Safety Report 16565484 (Version 1)
Quarter: 2019Q3

REPORT INFORMATION
  Report Type: Spontaneous
  Country: US (occurrence: US)
  Receive Date: 20190711
  Receipt Date: 20190711
  Transmission Date: 20191004
  Serious: Yes (Other)
  Sender: FDA-Public Use
  Company Number: None

PATIENT
  Age: 50 Year
  Sex: Female

DRUGS (4)
  1. BUPRENORPHINE NALOXONE 8-2MG TABLET [Concomitant]
     Active Substance: BUPRENORPHINE\NALOXONE
     Dates: start: 20190103
  2. SUBLOCADE INJECTIONS [Concomitant]
     Dates: start: 20181106, end: 20190102
  3. BUPRENORPHINE/NALAXONE TABLETS [Suspect]
     Active Substance: BUPRENORPHINE HYDROCHLORIDE\NALOXONE HYDROCHLORIDE
     Indication: DRUG DEPENDENCE
     Route: 048
     Dates: start: 20180827, end: 20190711
  4. BUPRENORPHINE NALOXONE 8-NG TABLETS [Concomitant]
     Active Substance: BUPRENORPHINE\NALOXONE
     Dates: start: 20180827, end: 20181105

REACTIONS (3)
  - Vomiting [None]
  - Product solubility abnormal [None]
  - Nausea [None]

NARRATIVE: CASE EVENT DATE: 20190710
